FAERS Safety Report 19265695 (Version 2)
Quarter: 2021Q2

REPORT INFORMATION
  Report Type: Report from Study
  Country: US (occurrence: US)
  Receive Date: 20210517
  Receipt Date: 20210525
  Transmission Date: 20210717
  Serious: Yes (Life-Threatening, Hospitalization)
  Sender: FDA-Public Use
  Company Number: US-CELGENEUS-USA-20210402786

PATIENT
  Age: 57 Year
  Sex: Male
  Weight: 106 kg

DRUGS (20)
  1. SODIUM CHLORIDE. [Concomitant]
     Active Substance: SODIUM CHLORIDE
     Indication: SUPPLEMENTATION THERAPY
     Route: 041
     Dates: start: 20210406, end: 20210406
  2. LEVETIRACETAM. [Concomitant]
     Active Substance: LEVETIRACETAM
     Indication: PROPHYLAXIS
     Route: 048
     Dates: start: 20210329, end: 20210330
  3. FLUDARABINE [Suspect]
     Active Substance: FLUDARABINE PHOSPHATE
     Indication: CHRONIC LYMPHOCYTIC LEUKAEMIA
     Dosage: 50 MILLIGRAM
     Route: 041
     Dates: start: 20210303, end: 20210305
  4. SODIUM CHLORIDE. [Concomitant]
     Active Substance: SODIUM CHLORIDE
     Indication: VASCULAR DEVICE OCCLUSION
     Route: 041
     Dates: start: 20210328, end: 20210404
  5. JCAR017 [Suspect]
     Active Substance: LISOCABTAGENE MARALEUCEL
     Indication: CHRONIC LYMPHOCYTIC LEUKAEMIA
     Dosage: 100 X 10^6 CAR + T CELLS
     Route: 041
     Dates: start: 20210309, end: 20210309
  6. FLUTICASONE PROPIONATE. [Concomitant]
     Active Substance: FLUTICASONE PROPIONATE
     Indication: NASAL CONGESTION
     Route: 045
     Dates: start: 20200210
  7. INSULIN LISPRO [Concomitant]
     Active Substance: INSULIN LISPRO
     Indication: HYPERGLYCAEMIA
     Route: 030
     Dates: start: 201112
  8. SODIUM CHLORIDE. [Concomitant]
     Active Substance: SODIUM CHLORIDE
     Indication: ANTIVIRAL PROPHYLAXIS
     Route: 065
     Dates: start: 20210406, end: 20210406
  9. ALBUTEROL. [Concomitant]
     Active Substance: ALBUTEROL
     Indication: DYSPNOEA
     Route: 055
     Dates: start: 20210402, end: 20210402
  10. ALBUTEROL. [Concomitant]
     Active Substance: ALBUTEROL
     Indication: WHEEZING
  11. ACYCLOVIR. [Concomitant]
     Active Substance: ACYCLOVIR
     Indication: ANTIVIRAL PROPHYLAXIS
     Route: 048
     Dates: start: 20210328, end: 20210330
  12. ALLOPURINOL. [Concomitant]
     Active Substance: ALLOPURINOL
     Indication: TUMOUR LYSIS SYNDROME
     Route: 048
     Dates: start: 20210322, end: 20210330
  13. CYCLOPHOSPHAMIDE. [Suspect]
     Active Substance: CYCLOPHOSPHAMIDE
     Indication: CHRONIC LYMPHOCYTIC LEUKAEMIA
     Dosage: 700 MILLIGRAM
     Route: 041
     Dates: start: 20210303, end: 20210305
  14. ACYCLOVIR. [Concomitant]
     Active Substance: ACYCLOVIR
     Indication: ANTIBIOTIC PROPHYLAXIS
     Route: 048
     Dates: start: 202007
  15. LEVEMIR [Concomitant]
     Active Substance: INSULIN DETEMIR
     Indication: HYPERGLYCAEMIA
     Route: 030
     Dates: start: 201112
  16. PENTAMIDINE [Concomitant]
     Active Substance: PENTAMIDINE
     Indication: ANTIVIRAL PROPHYLAXIS
     Route: 055
     Dates: start: 20210402, end: 20210402
  17. DEXAMETHASONE. [Concomitant]
     Active Substance: DEXAMETHASONE
     Indication: PRODUCT USED FOR UNKNOWN INDICATION
     Route: 041
     Dates: start: 20210322, end: 20210330
  18. TRIAMCINOLONE [Concomitant]
     Active Substance: TRIAMCINOLONE
     Indication: ARTHROPOD BITE
     Route: 061
     Dates: start: 201906
  19. FENTANYL. [Concomitant]
     Active Substance: FENTANYL
     Indication: ANAESTHESIA
     Route: 041
     Dates: start: 20210406, end: 20210406
  20. ANAKINRA [Concomitant]
     Active Substance: ANAKINRA
     Indication: HAEMOPHAGOCYTIC LYMPHOHISTIOCYTOSIS
     Route: 058
     Dates: start: 20210326, end: 20210403

REACTIONS (2)
  - Septic shock [Recovered/Resolved]
  - Acute respiratory failure [Recovered/Resolved]

NARRATIVE: CASE EVENT DATE: 20210412
